FAERS Safety Report 9028280 (Version 1)
Quarter: 2013Q1

REPORT INFORMATION
  Report Type: Spontaneous
  Country: US (occurrence: None)
  Receive Date: 20130115
  Receipt Date: 20130115
  Transmission Date: 20140127
  Serious: Yes (Hospitalization)
  Sender: FDA-Public Use
  Company Number: None

PATIENT
  Sex: Female
  Weight: 126.55 kg

DRUGS (1)
  1. GEODON [Suspect]
     Dosage: 2 TABS AM 8 PM
     Dates: start: 2009

REACTIONS (1)
  - Convulsion [None]
